FAERS Safety Report 26106164 (Version 1)
Quarter: 2025Q4

REPORT INFORMATION
  Report Type: Spontaneous
  Country: EU (occurrence: EU)
  Receive Date: 20251201
  Receipt Date: 20251201
  Transmission Date: 20260118
  Serious: Yes (Death)
  Sender: IMMUNOCORE
  Company Number: EU-Medison-001761

PATIENT

DRUGS (1)
  1. TEBENTAFUSP [Suspect]
     Active Substance: TEBENTAFUSP
     Indication: Uveal melanoma
     Dosage: 68 MICROGRAM
     Route: 042
     Dates: start: 2023, end: 202511

REACTIONS (2)
  - Cholangitis [Fatal]
  - Jaundice [Fatal]
